FAERS Safety Report 14201431 (Version 1)
Quarter: 2017Q4

REPORT INFORMATION
  Report Type: Spontaneous
  Country: US (occurrence: US)
  Receive Date: 20171117
  Receipt Date: 20171117
  Transmission Date: 20180321
  Serious: No
  Sender: FDA-Public Use
  Company Number: US-PERRIGO-17US023413

PATIENT
  Age: 87 Year
  Sex: Male
  Weight: 83.9 kg

DRUGS (6)
  1. POLYETHYLENE GLYCOL 3350. [Suspect]
     Active Substance: POLYETHYLENE GLYCOL 3350
     Indication: CONSTIPATION
     Dosage: 17 G, QD, PRN
     Route: 048
     Dates: end: 20170504
  2. DULCOLAX (BISACODYL) [Suspect]
     Active Substance: BISACODYL
     Indication: CONSTIPATION
     Dosage: 4 TABLETS, QD, PRN
     Route: 048
     Dates: start: 20170413, end: 20170504
  3. GLYCERIN                           /00200601/ [Suspect]
     Active Substance: GLYCERIN
     Indication: CONSTIPATION
     Dosage: 2 SUPPOSITORIES QD
     Route: 054
     Dates: start: 20170501, end: 20170504
  4. SENNA                              /00142201/ [Suspect]
     Active Substance: SENNA LEAF
     Indication: CONSTIPATION
     Dosage: 4 TABLETS, QD, PRN
     Route: 048
     Dates: start: 20170427, end: 20170503
  5. LEVODOPA [Concomitant]
     Active Substance: LEVODOPA
     Indication: PARKINSON^S DISEASE
     Dosage: UNK
     Route: 065
  6. CARBIDOPA. [Concomitant]
     Active Substance: CARBIDOPA
     Indication: PARKINSON^S DISEASE
     Dosage: UNK
     Route: 065

REACTIONS (4)
  - Incorrect drug administration duration [Recovered/Resolved]
  - Diarrhoea [Recovered/Resolved]
  - Drug effect decreased [Unknown]
  - Expired product administered [Recovered/Resolved]

NARRATIVE: CASE EVENT DATE: 201704
